FAERS Safety Report 5045583-6 (Version None)
Quarter: 2006Q3

REPORT INFORMATION
  Report Type: 
  Country: None (occurrence: None)
  Receive Date: 20060707
  Receipt Date: 20060527
  Transmission Date: 20061208
  Serious: Yes (Hospitalization)
  Sender: FDA-Public Use
  Company Number: US-ROCHE-449866

PATIENT
  Age: 53 Year
  Sex: Female
  Weight: 90.7 kg

DRUGS (4)
  1. PEGASYS [Suspect]
     Indication: HEPATITIS C
     Route: 058
     Dates: start: 20060519, end: 20060526
  2. PEGASYS [Suspect]
     Route: 058
     Dates: start: 20060616, end: 20060623
  3. RIBAVIRIN [Suspect]
     Indication: HEPATITIS C
     Route: 048
     Dates: start: 20060519, end: 20060526
  4. RIBAVIRIN [Suspect]
     Route: 048
     Dates: start: 20060616

REACTIONS (8)
  - BLOOD PRESSURE DECREASED [None]
  - DEHYDRATION [None]
  - DIARRHOEA [None]
  - ELECTROLYTE IMBALANCE [None]
  - HEADACHE [None]
  - NAUSEA [None]
  - PYREXIA [None]
  - VOMITING [None]
